FAERS Safety Report 11388254 (Version 1)
Quarter: 2015Q3

REPORT INFORMATION
  Report Type: Spontaneous
  Country: CA (occurrence: CA)
  Receive Date: 20150817
  Receipt Date: 20150817
  Transmission Date: 20151125
  Serious: Yes (Other)
  Sender: FDA-Public Use
  Company Number: CA-PFIZER INC-2015267361

PATIENT
  Age: 17 Year
  Sex: Female
  Weight: 45 kg

DRUGS (21)
  1. VENTOLIN [Concomitant]
     Active Substance: ALBUTEROL SULFATE
  2. CIPROFLOXACIN. [Concomitant]
     Active Substance: CIPROFLOXACIN
  3. ENOXAPARIN [Concomitant]
     Active Substance: ENOXAPARIN
  4. FORZA 10 [Concomitant]
  5. VITAMIN K [Concomitant]
     Active Substance: PHYTONADIONE
  6. VFEND [Suspect]
     Active Substance: VORICONAZOLE
     Dosage: UNK
  7. PROBACLAC [Concomitant]
  8. URSODEOXYCHOLIC ACID [Concomitant]
     Active Substance: URSODIOL
  9. VITAMIN D [Concomitant]
     Active Substance: CHOLECALCIFEROL
  10. ADVAIR DISKUS [Concomitant]
     Active Substance: FLUTICASONE PROPIONATE\SALMETEROL XINAFOATE
  11. LAX-A-DAY [Concomitant]
  12. VITAMIN E [Concomitant]
     Active Substance: .ALPHA.-TOCOPHEROL
  13. VFEND [Suspect]
     Active Substance: VORICONAZOLE
     Indication: ASPERGILLUS INFECTION
     Dosage: 400 MG, 2X/DAY
     Route: 048
  14. ATOMOXETINE [Concomitant]
     Active Substance: ATOMOXETINE
  15. CEFTAZIDIME. [Concomitant]
     Active Substance: CEFTAZIDIME
  16. OMEPRAZOLE. [Concomitant]
     Active Substance: OMEPRAZOLE
  17. PULMOZYME [Concomitant]
     Active Substance: DORNASE ALFA
  18. NASONEX [Concomitant]
     Active Substance: MOMETASONE FUROATE
  19. CLOXACILLIN [Concomitant]
     Active Substance: CLOXACILLIN
  20. CREON [Concomitant]
     Active Substance: PANCRELIPASE AMYLASE\PANCRELIPASE LIPASE\PANCRELIPASE PROTEASE
  21. MELATONIN [Concomitant]
     Active Substance: MELATONIN

REACTIONS (2)
  - Photopsia [Recovered/Resolved]
  - Visual impairment [Recovered/Resolved]
